FAERS Safety Report 10385679 (Version 2)
Quarter: 2014Q3

REPORT INFORMATION
  Report Type: Spontaneous
  Country: KR (occurrence: KR)
  Receive Date: 20140814
  Receipt Date: 20140904
  Transmission Date: 20150326
  Serious: Yes (Other)
  Sender: FDA-Public Use
  Company Number: KR-PFIZER INC-2014223173

PATIENT
  Sex: Female

DRUGS (1)
  1. SAYANA [Suspect]
     Active Substance: MEDROXYPROGESTERONE
     Indication: ENDOMETRIOSIS
     Dosage: UNK
     Dates: start: 20140521

REACTIONS (5)
  - Ovarian enlargement [Unknown]
  - Fallopian tube enlargement [Unknown]
  - Metrorrhagia [Not Recovered/Not Resolved]
  - Adnexa uteri pain [Unknown]
  - Inappropriate schedule of drug administration [Unknown]

NARRATIVE: CASE EVENT DATE: 20140521
